FAERS Safety Report 10058853 (Version 1)
Quarter: 2014Q2

REPORT INFORMATION
  Report Type: Spontaneous
  Country: US (occurrence: US)
  Receive Date: 20140404
  Receipt Date: 20140404
  Transmission Date: 20141212
  Serious: No
  Sender: FDA-Public Use
  Company Number: US-009507513-1404USA002881

PATIENT
  Sex: Male

DRUGS (2)
  1. PEGINTRON [Suspect]
     Indication: HEPATITIS C
     Dosage: REDIPEN, 0.4CC, QW
     Route: 058
     Dates: start: 20130901
  2. REBETOL [Suspect]
     Indication: HEPATITIS C
     Dosage: 1000MG, BID
     Route: 048

REACTIONS (1)
  - Injection site erythema [Unknown]
